FAERS Safety Report 5196436-4 (Version None)
Quarter: 2006Q4

REPORT INFORMATION
  Report Type: 
  Country: None (occurrence: None)
  Receive Date: 20061222
  Receipt Date: 20061214
  Transmission Date: 20070319
  Serious: Yes (Hospitalization)
  Sender: FDA-Public Use
  Company Number: 2006-03078

PATIENT
  Age: 65 Year
  Sex: Female
  Weight: 52 kg

DRUGS (3)
  1. VELCADE [Suspect]
     Indication: MULTIPLE MYELOMA
     Dosage: 2.00 MG,
     Dates: start: 20060929, end: 20061030
  2. VITAMINS [Concomitant]
  3. TRANEXAMIC ACID (TRANEXAMIC ACID) [Concomitant]

REACTIONS (2)
  - SKIN INFECTION [None]
  - STAPHYLOCOCCAL INFECTION [None]
